FAERS Safety Report 7223054-6 (Version None)
Quarter: 2011Q1

REPORT INFORMATION
  Report Type: 
  Country: None (occurrence: None)
  Receive Date: 20110112
  Receipt Date: 20110105
  Transmission Date: 20110831
  Serious: Yes (Hospitalization, Other)
  Sender: FDA-Public Use
  Company Number: DE-MERCK-1011DEU00010

PATIENT
  Age: 74 Year
  Sex: Male
  Weight: 95 kg

DRUGS (11)
  1. JANUMET [Suspect]
     Indication: TYPE 2 DIABETES MELLITUS
     Route: 048
     Dates: start: 20100107, end: 20100831
  2. LACTASE [Concomitant]
     Route: 048
     Dates: start: 20080101, end: 20100831
  3. ALLOPURINOL [Concomitant]
     Route: 048
     Dates: start: 20080101, end: 20100905
  4. METOCLOPRAMIDE HYDROCHLORIDE [Concomitant]
     Indication: VOMITING
     Route: 048
     Dates: start: 20100830, end: 20100830
  5. OMEPRAZOLE [Concomitant]
     Route: 048
     Dates: start: 20050101
  6. JANUMET [Suspect]
     Route: 048
     Dates: start: 20100901, end: 20100901
  7. JANUMET [Suspect]
     Route: 048
     Dates: start: 20100902, end: 20100902
  8. JANUMET [Suspect]
     Route: 048
     Dates: start: 20100903, end: 20100903
  9. IBUPROFEN [Concomitant]
     Route: 048
     Dates: start: 20050101
  10. SIMVASTATIN [Concomitant]
     Route: 048
     Dates: start: 20050211
  11. RAMIPRIL [Concomitant]
     Indication: HYPERTENSION
     Route: 048
     Dates: start: 20090101

REACTIONS (4)
  - HEPATITIS ACUTE [None]
  - INCORRECT DOSE ADMINISTERED [None]
  - UNDERDOSE [None]
  - WRONG TECHNIQUE IN DRUG USAGE PROCESS [None]
